FAERS Safety Report 6963775-3 (Version None)
Quarter: 2010Q3

REPORT INFORMATION
  Report Type: 
  Country: None (occurrence: None)
  Receive Date: 20100902
  Receipt Date: 20100825
  Transmission Date: 20110219
  Serious: Yes (Death, Hospitalization)
  Sender: FDA-Public Use
  Company Number: FR-BAXTER-2010BH022403

PATIENT
  Age: 71 Year
  Sex: Male

DRUGS (6)
  1. CYCLOPHOSPHAMIDE [Suspect]
     Indication: VASCULITIS NECROTISING
     Route: 048
     Dates: start: 20071026
  2. CYCLOPHOSPHAMIDE [Suspect]
     Route: 065
     Dates: start: 20070101, end: 20070101
  3. METHYLPREDNISOLONE [Suspect]
     Indication: MICROSCOPIC POLYANGIITIS
     Route: 048
     Dates: start: 20071022, end: 20080105
  4. METHYLPREDNISOLONE [Suspect]
     Route: 048
     Dates: start: 20070101, end: 20070101
  5. METHYLPREDNISOLONE [Suspect]
     Route: 048
     Dates: start: 20070824, end: 20070101
  6. MABTHERA [Suspect]
     Indication: VASCULITIS NECROTISING
     Route: 042
     Dates: start: 20071102, end: 20071120

REACTIONS (3)
  - LUNG DISORDER [None]
  - MULTI-ORGAN FAILURE [None]
  - SEPTIC SHOCK [None]
